FAERS Safety Report 20453867 (Version 1)
Quarter: 2022Q1

REPORT INFORMATION
  Report Type: Spontaneous
  Country: GR (occurrence: GR)
  Receive Date: 20220210
  Receipt Date: 20220210
  Transmission Date: 20220424
  Serious: Yes (Hospitalization)
  Sender: FDA-Public Use
  Company Number: GR-MYLANLABS-2021M1087067

PATIENT
  Age: 64 Year
  Sex: Female

DRUGS (4)
  1. BOSENTAN [Interacting]
     Active Substance: BOSENTAN
     Indication: Prophylaxis
     Dosage: UNK
     Route: 065
  2. PREDNISOLONE [Suspect]
     Active Substance: PREDNISOLONE
     Indication: Product used for unknown indication
     Route: 065
  3. NINTEDANIB [Interacting]
     Active Substance: NINTEDANIB
     Indication: Interstitial lung disease
     Route: 065
  4. NINTEDANIB [Interacting]
     Active Substance: NINTEDANIB
     Indication: Systemic scleroderma

REACTIONS (1)
  - Pulmonary embolism [Recovering/Resolving]
